FAERS Safety Report 6730192-0 (Version None)
Quarter: 2010Q2

REPORT INFORMATION
  Report Type: 
  Country: None (occurrence: None)
  Receive Date: 20100518
  Receipt Date: 20100512
  Transmission Date: 20101027
  Serious: Yes (Life-Threatening, Hospitalization)
  Sender: FDA-Public Use
  Company Number: DE-JNJFOC-20091101889

PATIENT
  Age: 70 Year
  Sex: Male

DRUGS (22)
  1. HALDOL DECANOAT [Suspect]
     Indication: DRUG USE FOR UNKNOWN INDICATION
     Route: 030
  2. HALDOL DECANOAT [Suspect]
     Route: 030
  3. ERGENYL [Suspect]
     Indication: DRUG USE FOR UNKNOWN INDICATION
     Route: 048
     Dates: start: 20090526, end: 20090605
  4. ERGENYL [Suspect]
     Route: 048
     Dates: start: 20090526, end: 20090605
  5. ERGENYL [Suspect]
     Route: 048
     Dates: start: 20090526, end: 20090605
  6. ERGENYL [Suspect]
     Route: 048
     Dates: start: 20090526, end: 20090605
  7. QUILONUM RETARD [Interacting]
     Indication: DRUG USE FOR UNKNOWN INDICATION
     Route: 048
     Dates: end: 20090519
  8. EUNERPAN [Suspect]
     Indication: DRUG USE FOR UNKNOWN INDICATION
     Route: 048
     Dates: end: 20090609
  9. EUNERPAN [Suspect]
     Route: 048
     Dates: end: 20090609
  10. EUNERPAN [Suspect]
     Route: 048
     Dates: end: 20090609
  11. ENALAPRIL [Interacting]
     Indication: DRUG USE FOR UNKNOWN INDICATION
     Route: 048
     Dates: end: 20090519
  12. AKINETON [Suspect]
     Indication: DRUG USE FOR UNKNOWN INDICATION
     Route: 048
  13. AKINETON [Suspect]
     Route: 048
  14. ALLOPURINOL [Suspect]
     Indication: DRUG USE FOR UNKNOWN INDICATION
     Route: 048
     Dates: end: 20090519
  15. HCT HEXAL [Interacting]
     Indication: DRUG USE FOR UNKNOWN INDICATION
     Route: 048
  16. FUROSEMID [Interacting]
     Indication: DRUG USE FOR UNKNOWN INDICATION
     Route: 048
  17. LORAZEPAM [Suspect]
     Indication: DRUG USE FOR UNKNOWN INDICATION
     Route: 065
  18. ZOPICLONE [Suspect]
     Indication: DRUG USE FOR UNKNOWN INDICATION
     Route: 065
  19. ARIPIPRAZOLE [Suspect]
     Indication: DRUG USE FOR UNKNOWN INDICATION
     Route: 065
  20. QUETIAPINE [Suspect]
     Indication: DRUG USE FOR UNKNOWN INDICATION
     Route: 065
  21. LITHIUM CARBONATE [Suspect]
     Indication: DRUG USE FOR UNKNOWN INDICATION
     Route: 065
  22. TORSEMIDE [Concomitant]
     Route: 065
     Dates: start: 20090519

REACTIONS (13)
  - AGITATION [None]
  - ATRIAL FIBRILLATION [None]
  - ATRIOVENTRICULAR BLOCK COMPLETE [None]
  - BLOOD PRESSURE INCREASED [None]
  - DRUG INTERACTION [None]
  - ELECTROLYTE IMBALANCE [None]
  - GENERAL PHYSICAL HEALTH DETERIORATION [None]
  - HYPERKALAEMIA [None]
  - INGUINAL HERNIA [None]
  - OEDEMA [None]
  - PNEUMONIA [None]
  - POLYDIPSIA [None]
  - THERAPEUTIC AGENT TOXICITY [None]
